FAERS Safety Report 8738537 (Version 2)
Quarter: 2012Q4

REPORT INFORMATION
  Report Type: 
  Country: BR (occurrence: BR)
  Receive Date: 20120823
  Receipt Date: 20121106
  Transmission Date: 20130627
  Serious: Yes (Hospitalization, Other)
  Sender: FDA-Public Use
  Company Number: BR-JNJFOC-20120809446

PATIENT
  Age: 60 None
  Sex: Female
  Weight: 45 kg

DRUGS (4)
  1. REMICADE [Suspect]
     Indication: RHEUMATOID ARTHRITIS
     Route: 042
     Dates: start: 20120928
  2. REMICADE [Suspect]
     Indication: RHEUMATOID ARTHRITIS
     Route: 042
     Dates: start: 201112
  3. UNKNOWN MEDICATION [Suspect]
     Indication: PRODUCT USED FOR UNKNOWN INDICATION
     Route: 065
  4. CIMETIDINE [Concomitant]
     Indication: GASTRIC DISORDER
     Route: 065

REACTIONS (9)
  - Cardiac disorder [Unknown]
  - Herpes virus infection [Unknown]
  - Pyrexia [Unknown]
  - Blood pressure decreased [Unknown]
  - Vomiting [Unknown]
  - Pain [Unknown]
  - Skin mass [Not Recovered/Not Resolved]
  - Arthralgia [Not Recovered/Not Resolved]
  - Weight decreased [Not Recovered/Not Resolved]
